FAERS Safety Report 9279221 (Version 2)
Quarter: 2014Q1

REPORT INFORMATION
  Report Type: Spontaneous
  Country: US (occurrence: US)
  Receive Date: 20130508
  Receipt Date: 20140314
  Transmission Date: 20141002
  Serious: Yes (Other)
  Sender: FDA-Public Use
  Company Number: CHPA2013US007583

PATIENT
  Age: 81 Year
  Sex: Female

DRUGS (4)
  1. EXCEDRIN EXTRA STRENGTH [Suspect]
     Indication: HEADACHE
     Dosage: 1 DF, 2 TO 3 TIMES/DAY
     Route: 048
  2. EXCEDRIN EXTRA STRENGTH [Suspect]
     Indication: PAIN
     Dosage: 6 DF, QD
     Route: 048
  3. EXCEDRIN EXTRA STRENGTH [Suspect]
     Dosage: UNK, UNK
     Route: 048
  4. BABY ASPIRIN [Concomitant]
     Dosage: 81 MG, QD
     Dates: start: 2005

REACTIONS (8)
  - Encephalitis [Recovered/Resolved]
  - Headache [Recovered/Resolved]
  - Breast cancer female [Recovered/Resolved]
  - Back pain [Recovered/Resolved]
  - Maternal exposure during pregnancy [Unknown]
  - Incorrect drug administration duration [Unknown]
  - Incorrect dose administered [Unknown]
  - Underdose [Unknown]
